FAERS Safety Report 8252179-1 (Version None)
Quarter: 2012Q2

REPORT INFORMATION
  Report Type: 
  Country: None (occurrence: None)
  Receive Date: 20120402
  Receipt Date: 20120322
  Transmission Date: 20120825
  Serious: Yes (Hospitalization, Other)
  Sender: FDA-Public Use
  Company Number: US-ELI_LILLY_AND_COMPANY-US201201007981

PATIENT
  Sex: Female
  Weight: 67.574 kg

DRUGS (2)
  1. FORTEO [Suspect]
     Dosage: UNK, UNKNOWN
  2. FORTEO [Suspect]
     Dosage: UNK, UNKNOWN

REACTIONS (6)
  - FALL [None]
  - ASTHENIA [None]
  - ANKLE FRACTURE [None]
  - POLYMYOSITIS [None]
  - POLYNEUROPATHY [None]
  - LOWER LIMB FRACTURE [None]
